FAERS Safety Report 5398001-2 (Version None)
Quarter: 2007Q3

REPORT INFORMATION
  Report Type: 
  Country: None (occurrence: None)
  Receive Date: 20070726
  Receipt Date: 20070602
  Transmission Date: 20080115
  Serious: Yes (Hospitalization, Other)
  Sender: FDA-Public Use
  Company Number: US-PURDUE-USA_2007_0028343

PATIENT
  Sex: Female

DRUGS (1)
  1. OXYCONTIN [Suspect]
     Indication: ARTHRALGIA
     Dosage: UNK MG, UNK
     Route: 048
     Dates: start: 19990801, end: 20011218

REACTIONS (7)
  - AMNESIA [None]
  - ANOREXIA [None]
  - DIARRHOEA [None]
  - GASTRIC DISORDER [None]
  - HEADACHE [None]
  - VOMITING [None]
  - WEIGHT DECREASED [None]
